FAERS Safety Report 6541638-5 (Version None)
Quarter: 2010Q1

REPORT INFORMATION
  Report Type: 
  Country: None (occurrence: None)
  Receive Date: 20100119
  Receipt Date: 20091218
  Transmission Date: 20100710
  Serious: Yes (Death, Other)
  Sender: FDA-Public Use
  Company Number: GB-CELGENEUS-167-20785-10010093

PATIENT
  Sex: Female

DRUGS (3)
  1. THALIDOMIDE PHARMION [Suspect]
     Route: 048
  2. CYCLOPHOSPHAMIDE [Suspect]
     Route: 065
  3. DEXAMETHASONE [Suspect]
     Route: 065

REACTIONS (7)
  - DEATH [None]
  - NECROTISING COLITIS [None]
  - NEUTROPENIA [None]
  - PERITONITIS [None]
  - PNEUMONIA [None]
  - RENAL FAILURE [None]
  - SEPSIS [None]
